FAERS Safety Report 9908941 (Version 1)
Quarter: 2014Q1

REPORT INFORMATION
  Report Type: Spontaneous
  Country: CO (occurrence: CO)
  Receive Date: 20140219
  Receipt Date: 20140219
  Transmission Date: 20141002
  Serious: Yes (Hospitalization)
  Sender: FDA-Public Use
  Company Number: CO-UCBSA-112892

PATIENT
  Age: 52 Year
  Sex: Male

DRUGS (1)
  1. CIMZIA [Suspect]
     Indication: RHEUMATOID ARTHRITIS
     Dosage: DOSE: 200MG
     Route: 058
     Dates: start: 20121226, end: 20140105

REACTIONS (1)
  - Tuberculosis [Not Recovered/Not Resolved]
